FAERS Safety Report 11664412 (Version 1)
Quarter: 2015Q4

REPORT INFORMATION
  Report Type: Report from Study
  Country: US (occurrence: US)
  Receive Date: 20151027
  Receipt Date: 20151027
  Transmission Date: 20160304
  Serious: No
  Sender: FDA-Public Use
  Company Number: PHEH2015US008499

PATIENT
  Sex: Female

DRUGS (2)
  1. EXJADE [Suspect]
     Active Substance: DEFERASIROX
     Indication: OFF LABEL USE
  2. EXJADE [Suspect]
     Active Substance: DEFERASIROX
     Indication: BLOOD TEST ABNORMAL
     Dosage: 5 DF, QD
     Route: 048
     Dates: start: 20120127

REACTIONS (1)
  - Abnormal behaviour [Unknown]
